FAERS Safety Report 6439513-X (Version None)
Quarter: 2009Q4

REPORT INFORMATION
  Report Type: 
  Country: None (occurrence: None)
  Receive Date: 20091113
  Receipt Date: 20091109
  Transmission Date: 20100525
  Serious: Yes (Hospitalization)
  Sender: FDA-Public Use
  Company Number: A0816070A

PATIENT
  Age: 40 Year
  Sex: Female

DRUGS (16)
  1. SEREVENT [Suspect]
     Indication: ASTHMA
     Dosage: 2PUFF TWICE PER DAY
     Route: 055
     Dates: start: 19940101, end: 19980101
  2. ADVAIR DISKUS 100/50 [Suspect]
     Indication: ASTHMA
     Dosage: 1PUFF TWICE PER DAY
     Route: 055
     Dates: start: 19980101, end: 20050101
  3. VENTOLIN [Suspect]
     Indication: ASTHMA
     Dosage: 2PUFF AS REQUIRED
     Route: 055
     Dates: start: 20040101, end: 20090601
  4. BENADRYL [Concomitant]
  5. ALLEGRA [Concomitant]
  6. CLARITIN [Concomitant]
  7. CYCLOSPORINE [Concomitant]
  8. PREDNISONE [Concomitant]
  9. UNSPECIFIED CREAM [Concomitant]
  10. MAXAIR [Concomitant]
  11. NEXIUM [Concomitant]
  12. PROTONIX [Concomitant]
  13. FLEXERIL [Concomitant]
  14. ULTRACET [Concomitant]
  15. TETRACYCLINE [Concomitant]
  16. ALLERGY SHOTS [Concomitant]

REACTIONS (13)
  - ABDOMINAL DISCOMFORT [None]
  - ABDOMINAL PAIN UPPER [None]
  - DRUG INEFFECTIVE [None]
  - ENTEROCOLITIS [None]
  - ERYTHEMA [None]
  - HEPATOMEGALY [None]
  - HYPERSENSITIVITY [None]
  - LACRIMATION INCREASED [None]
  - PHOTOSENSITIVITY REACTION [None]
  - PRURITUS [None]
  - RASH [None]
  - SCAR [None]
  - STAPHYLOCOCCAL SKIN INFECTION [None]
